FAERS Safety Report 5669751-5 (Version None)
Quarter: 2008Q1

REPORT INFORMATION
  Report Type: 
  Country: None (occurrence: None)
  Receive Date: 20080313
  Receipt Date: 20080313
  Transmission Date: 20080703
  Serious: No
  Sender: FDA-Public Use
  Company Number: None

PATIENT
  Sex: Female
  Weight: 121.4 kg

DRUGS (1)
  1. INTRON A [Suspect]
     Dosage: 240 MILLION IU

REACTIONS (1)
  - NO ADVERSE EVENT [None]
